FAERS Safety Report 21206890 (Version 1)
Quarter: 2022Q3

REPORT INFORMATION
  Report Type: Spontaneous
  Country: US (occurrence: None)
  Receive Date: 20220811
  Receipt Date: 20220811
  Transmission Date: 20221027
  Serious: Yes (Other)
  Sender: FDA-Public Use
  Company Number: None

PATIENT
  Age: 67 Year
  Sex: Male
  Weight: 89.1 kg

DRUGS (1)
  1. MAGNESIUM CITRATE [Suspect]
     Active Substance: MAGNESIUM CITRATE
     Indication: Colonoscopy
     Dosage: OTHER QUANTITY : 8.3 OUNCE(S);?FREQUENCY : 4 TIMES A DAY;?
     Route: 048
     Dates: start: 20220427, end: 20220427

REACTIONS (2)
  - Diarrhoea [None]
  - Recalled product administered [None]

NARRATIVE: CASE EVENT DATE: 20220427
